FAERS Safety Report 8876233 (Version 2)
Quarter: 2012Q4

REPORT INFORMATION
  Report Type: 
  Country: DE (occurrence: DE)
  Receive Date: 20121023
  Receipt Date: 20121102
  Transmission Date: 20130627
  Serious: No
  Sender: FDA-Public Use
  Company Number: DE-009507513-1209DEU000828

PATIENT
  Age: 71 Year
  Sex: Female
  Weight: 52 kg

DRUGS (3)
  1. COSOPT [Suspect]
     Indication: OPEN ANGLE GLAUCOMA
     Dosage: 20mg/ml and 5mg/ml, 1 drop of each solution in the right eye, twice daily.
     Route: 047
     Dates: start: 20040130, end: 20120911
  2. COSOPT [Suspect]
     Dosage: UNK
  3. TRAVATAN [Concomitant]
     Indication: GLAUCOMA
     Dosage: opthalmic solution
     Route: 047

REACTIONS (6)
  - Chillblains [Recovered/Resolved]
  - Raynaud^s phenomenon [Recovered/Resolved]
  - Psoriatic arthropathy [Not Recovered/Not Resolved]
  - Rheumatoid arthritis [Recovered/Resolved]
  - Dermatitis psoriasiform [Not Recovered/Not Resolved]
  - Overdose [Unknown]
